FAERS Safety Report 9187593 (Version 3)
Quarter: 2014Q3

REPORT INFORMATION
  Report Type: Report from Study
  Country: US (occurrence: US)
  Receive Date: 20130325
  Receipt Date: 20140721
  Transmission Date: 20150326
  Serious: Yes (Disabling, Other)
  Sender: FDA-Public Use
  Company Number: US-ACTELION-A-US2012-73349

PATIENT
  Age: 61 Year
  Sex: Female

DRUGS (29)
  1. TRACLEER [Suspect]
     Active Substance: BOSENTAN\BOSENTAN MONOHYDRATE
     Dosage: 125 MG, BID
     Route: 048
     Dates: start: 2009
  2. MAGNESIUM [Concomitant]
     Active Substance: MAGNESIUM
     Dosage: 250 MG, QPM
  3. SPIRONOLACTONE. [Concomitant]
     Active Substance: SPIRONOLACTONE
     Dosage: 50 MG, QD
  4. ESTROGEN [Concomitant]
     Active Substance: ESTRONE\SUS SCROFA OVARY
     Dosage: 2.5 MG, QD
     Dates: start: 2012
  5. MIRALAX [Concomitant]
     Active Substance: POLYETHYLENE GLYCOL 3350
     Dosage: UNK, QPM
  6. TRACLEER [Suspect]
     Active Substance: BOSENTAN\BOSENTAN MONOHYDRATE
     Indication: PULMONARY ARTERIAL HYPERTENSION
     Dosage: 125 MG, BID
     Route: 048
     Dates: start: 2010
  7. PRAVASTATIN [Concomitant]
     Active Substance: PRAVASTATIN\PRAVASTATIN SODIUM
     Dosage: 20 MG, UNK
     Route: 048
  8. PRAVASTATIN [Concomitant]
     Active Substance: PRAVASTATIN\PRAVASTATIN SODIUM
     Dosage: 40 UNK, UNK
  9. LASIX [Concomitant]
     Active Substance: FUROSEMIDE
     Dosage: 80 MG, QD
  10. GABAPENTIN. [Concomitant]
     Active Substance: GABAPENTIN
     Dosage: 350 MG, BID
     Dates: start: 2012
  11. METOCLOPRAMIDE. [Concomitant]
     Active Substance: METOCLOPRAMIDE
     Dosage: 10 MG, PRN
  12. FLONASE [Concomitant]
     Active Substance: FLUTICASONE PROPIONATE
     Dosage: UNK, BID
  13. SPIRONOLACTONE. [Concomitant]
     Active Substance: SPIRONOLACTONE
     Dosage: 40 MG, BID
     Route: 048
  14. HYDROXYZINE [Concomitant]
     Active Substance: HYDROXYZINE\HYDROXYZINE HYDROCHLORIDE
     Dosage: 50 MG, PRN
  15. IBUPROFEN. [Concomitant]
     Active Substance: IBUPROFEN
     Dosage: 600 MG, PRN
  16. TRACLEER [Suspect]
     Active Substance: BOSENTAN\BOSENTAN MONOHYDRATE
     Dosage: 62.5 MG, BID
     Route: 048
     Dates: start: 2009
  17. VALIUM [Concomitant]
     Active Substance: DIAZEPAM
     Dosage: 10 MG, BID
     Route: 048
  18. TYLENOL WITH CODEINE [Concomitant]
     Active Substance: ACETAMINOPHEN\CODEINE PHOSPHATE
     Dosage: UNK
     Dates: start: 2011
  19. VITAMIN D [Concomitant]
     Active Substance: CHOLECALCIFEROL
     Dosage: 1000 IU, 4/WEEK
  20. CALCIUM [Concomitant]
     Active Substance: CALCIUM
     Dosage: 300 MG, 4/WEEK
  21. L-GLUTAMINE [Concomitant]
     Dosage: 250 MG, BID
  22. TRACLEER [Suspect]
     Active Substance: BOSENTAN\BOSENTAN MONOHYDRATE
     Dosage: 125 MG, BID
     Route: 048
     Dates: start: 2010, end: 2010
  23. PRILOSEC [Concomitant]
     Active Substance: OMEPRAZOLE MAGNESIUM
     Dosage: 20 MG, QD
     Route: 048
  24. COMPAZINE [Concomitant]
     Active Substance: PROCHLORPERAZINE MALEATE
     Dosage: 10 MG, PRN
  25. L TYROSINE [Concomitant]
     Dosage: 500 MG, QD
  26. MELATONIN [Concomitant]
     Active Substance: MELATONIN
     Dosage: 4 MG, PRN
  27. LEVOXYL [Concomitant]
     Active Substance: LEVOTHYROXINE SODIUM
     Dosage: 0.50 MG, QD
  28. REVATIO [Concomitant]
     Active Substance: SILDENAFIL CITRATE
     Dosage: 20 MG, TID
  29. LIBRAX [Concomitant]
     Active Substance: CHLORDIAZEPOXIDE HYDROCHLORIDE\CLIDINIUM BROMIDE
     Dosage: 10 MG, PRN

REACTIONS (20)
  - Upper respiratory tract infection [Not Recovered/Not Resolved]
  - Nasopharyngitis [Not Recovered/Not Resolved]
  - Parosmia [Not Recovered/Not Resolved]
  - Functional gastrointestinal disorder [Not Recovered/Not Resolved]
  - Abdominal distension [Not Recovered/Not Resolved]
  - Eye infection [Recovered/Resolved]
  - Cataract [Not Recovered/Not Resolved]
  - Upper limb fracture [Recovered/Resolved]
  - Dyspnoea [Recovered/Resolved]
  - Pseudomonas infection [Not Recovered/Not Resolved]
  - Muscle atrophy [Not Recovered/Not Resolved]
  - Humerus fracture [Recovered/Resolved]
  - Dry eye [Not Recovered/Not Resolved]
  - Staphylococcal infection [Not Recovered/Not Resolved]
  - Infection [Not Recovered/Not Resolved]
  - Gastrooesophageal reflux disease [Not Recovered/Not Resolved]
  - Fall [Recovered/Resolved]
  - Polyp [Not Recovered/Not Resolved]
  - Barrett^s oesophagus [Not Recovered/Not Resolved]
  - Fungal infection [Unknown]

NARRATIVE: CASE EVENT DATE: 2009
